FAERS Safety Report 11614856 (Version 2)
Quarter: 2015Q4

REPORT INFORMATION
  Report Type: Spontaneous
  Country: US (occurrence: US)
  Receive Date: 20151009
  Receipt Date: 20151113
  Transmission Date: 20160304
  Serious: Yes (Other)
  Sender: FDA-Public Use
  Company Number: US-SA-2015SA149301

PATIENT
  Age: 75 Year
  Sex: Female

DRUGS (1)
  1. ALLEGRA [Suspect]
     Active Substance: FEXOFENADINE HYDROCHLORIDE
     Indication: MULTIPLE ALLERGIES
     Dosage: TAKEN FROM: FOR MANY YEARS^
     Route: 048

REACTIONS (3)
  - Neoplasm malignant [Unknown]
  - Myocardial infarction [Unknown]
  - Expired product administered [Unknown]
